FAERS Safety Report 16837945 (Version 1)
Quarter: 2019Q3

REPORT INFORMATION
  Report Type: Spontaneous
  Country: BE (occurrence: BE)
  Receive Date: 20190923
  Receipt Date: 20190923
  Transmission Date: 20191005
  Serious: Yes (Hospitalization, Other)
  Sender: FDA-Public Use
  Company Number: BE-TEVA-2019-BE-1111120

PATIENT
  Age: 27 Year
  Sex: Female

DRUGS (1)
  1. CETIRIZINE [Suspect]
     Active Substance: CETIRIZINE HYDROCHLORIDE
     Indication: HYPERSENSITIVITY
     Dosage: 8 DF, UNK
     Route: 065

REACTIONS (4)
  - Paralysis [Unknown]
  - Overdose [Unknown]
  - Somnolence [Unknown]
  - Social problem [Unknown]

NARRATIVE: CASE EVENT DATE: 20190221
